FAERS Safety Report 22335830 (Version 1)
Quarter: 2023Q2

REPORT INFORMATION
  Report Type: Spontaneous
  Country: GB (occurrence: GB)
  Receive Date: 20230518
  Receipt Date: 20230518
  Transmission Date: 20230722
  Serious: Yes (Other)
  Sender: FDA-Public Use
  Company Number: GB-MHRA-MED-202305090735441980-KYLMN

PATIENT
  Age: 72 Year
  Sex: Female
  Weight: 70 kg

DRUGS (3)
  1. BISOPROLOL [Suspect]
     Active Substance: BISOPROLOL
     Indication: Adverse drug reaction
     Dosage: 10MGM DAILY
     Route: 065
     Dates: start: 20220219
  2. BISOPROLOL [Suspect]
     Active Substance: BISOPROLOL
     Dosage: 10MGM DAILY
     Route: 065
     Dates: start: 20220219
  3. EDOXABAN TOSYLATE [Concomitant]
     Active Substance: EDOXABAN TOSYLATE
     Indication: Adverse drug reaction
     Dosage: UNK
     Route: 065
     Dates: start: 20220219

REACTIONS (1)
  - Pain in extremity [Recovering/Resolving]

NARRATIVE: CASE EVENT DATE: 20220610
